FAERS Safety Report 7714505-9 (Version None)
Quarter: 2011Q3

REPORT INFORMATION
  Report Type: 
  Country: None (occurrence: None)
  Receive Date: 20110829
  Receipt Date: 20110818
  Transmission Date: 20111222
  Serious: Yes (Death)
  Sender: FDA-Public Use
  Company Number: CA-JNJFOC-20110811530

PATIENT
  Age: 34 Year
  Sex: Male

DRUGS (2)
  1. DURAGESIC-100 [Suspect]
     Indication: PAIN
     Route: 062
     Dates: start: 20061201, end: 20070801
  2. FENTANYL [Suspect]
     Indication: PAIN
     Route: 062
     Dates: start: 20061201, end: 20070801

REACTIONS (1)
  - RESPIRATORY FAILURE [None]
